FAERS Safety Report 5335591-X (Version None)
Quarter: 2007Q2

REPORT INFORMATION
  Report Type: 
  Country: None (occurrence: None)
  Receive Date: 20070526
  Receipt Date: 20070516
  Transmission Date: 20071010
  Serious: Yes (Other)
  Sender: FDA-Public Use
  Company Number: US-PFIZER INC-2007041218

PATIENT
  Sex: Male

DRUGS (1)
  1. CHANTIX [Suspect]
     Indication: EX-SMOKER

REACTIONS (5)
  - DRUG WITHDRAWAL SYNDROME [None]
  - IRRITABILITY [None]
  - NERVOUSNESS [None]
  - TREMOR [None]
  - TUNNEL VISION [None]
